FAERS Safety Report 23546917 (Version 2)
Quarter: 2024Q1

REPORT INFORMATION
  Report Type: Spontaneous
  Country: AU (occurrence: AU)
  Receive Date: 20240221
  Receipt Date: 20240223
  Transmission Date: 20240409
  Serious: Yes (Death, Hospitalization, Other)
  Sender: FDA-Public Use
  Company Number: AU-NOVOPROD-1176628

PATIENT
  Age: 58 Year
  Sex: Male

DRUGS (1)
  1. SAXENDA [Suspect]
     Active Substance: LIRAGLUTIDE
     Indication: Weight control
     Dosage: UNK

REACTIONS (3)
  - Death [Fatal]
  - Circulatory collapse [Unknown]
  - Abdominal pain upper [Unknown]
